FAERS Safety Report 16616562 (Version 1)
Quarter: 2019Q3

REPORT INFORMATION
  Report Type: Spontaneous
  Country: US (occurrence: US)
  Receive Date: 20190610
  Receipt Date: 20190610
  Transmission Date: 20191004
  Serious: No
  Sender: FDA-Public Use
  Company Number: None

PATIENT
  Age: 57 Year
  Sex: Female

DRUGS (1)
  1. STIVARGA [Suspect]
     Active Substance: REGORAFENIB
     Indication: COLON NEOPLASM
     Route: 048
     Dates: start: 20190410

REACTIONS (3)
  - Palmar-plantar erythrodysaesthesia syndrome [None]
  - Blister [None]
  - Skin irritation [None]

NARRATIVE: CASE EVENT DATE: 20190410
